FAERS Safety Report 6460566-7 (Version None)
Quarter: 2009Q4

REPORT INFORMATION
  Report Type: 
  Country: None (occurrence: None)
  Receive Date: 20091124
  Receipt Date: 20091020
  Transmission Date: 20100525
  Serious: Yes (Other)
  Sender: FDA-Public Use
  Company Number: E-09-144

PATIENT
  Age: 67 Year
  Sex: Male

DRUGS (17)
  1. IMC1121B (ANTI-VEGFR2 MAB) [Suspect]
     Dosage: 80.8571 MG (566MG, 1 IN 1 WK)
     Dates: start: 20090811, end: 20091006
  2. MITOXANTRONE [Suspect]
     Dosage: 1.2381 MG (26MG, 1 IN 21 D)
     Dates: start: 20090811, end: 20090922
  3. PREDNISONE [Suspect]
     Indication: PROSTATE CANCER METASTATIC
     Dosage: 5 MG (B.I.D.)
     Dates: start: 20090811
  4. CHOLESTYRAMINE (COLESTYRAMINE) [Concomitant]
  5. CYANOCOBALAMIN [Concomitant]
  6. IBUPROFEN [Concomitant]
  7. ELIGARD [Concomitant]
  8. LISINOPRIL [Concomitant]
  9. ASACOL [Concomitant]
  10. CENTRUM SILVER [Concomitant]
  11. ZOFRAN [Concomitant]
  12. NIACIN [Concomitant]
  13. OXYCODONE [Concomitant]
  14. MIRALAX [Concomitant]
  15. COMPAZINE [Concomitant]
  16. TRIAMTERENE [Concomitant]
  17. LIDOCAINE [Concomitant]

REACTIONS (2)
  - RETINAL TEAR [None]
  - VITREOUS FLOATERS [None]
